FAERS Safety Report 9567645 (Version 2)
Quarter: 2013Q3

REPORT INFORMATION
  Report Type: Spontaneous
  Country: US (occurrence: US)
  Receive Date: 20130930
  Receipt Date: 20130930
  Transmission Date: 20140515
  Serious: No
  Sender: FDA-Public Use
  Company Number: US-AMGEN-USASP2013012407

PATIENT
  Age: 47 Year
  Sex: Female

DRUGS (2)
  1. ENBREL [Suspect]
     Indication: PSORIASIS
     Dosage: 50 MG, RANDOMLY
     Dates: start: 20110101
  2. ENBREL [Suspect]
     Indication: PSORIATIC ARTHROPATHY

REACTIONS (4)
  - Injection site bruising [Not Recovered/Not Resolved]
  - Arthralgia [Recovered/Resolved]
  - Skin fissures [Not Recovered/Not Resolved]
  - Psoriasis [Recovered/Resolved]
